FAERS Safety Report 9971294 (Version 1)
Quarter: 2014Q1

REPORT INFORMATION
  Report Type: Spontaneous
  Country: US (occurrence: None)
  Receive Date: 20140304
  Receipt Date: 20140304
  Transmission Date: 20141002
  Serious: Yes (Hospitalization)
  Sender: FDA-Public Use
  Company Number: US-000936

PATIENT
  Sex: Female

DRUGS (5)
  1. GATTEX [Suspect]
     Indication: SHORT-BOWEL SYNDROME
     Route: 058
     Dates: start: 201401
  2. AMBIEN [Concomitant]
  3. ABILIFY [Concomitant]
  4. LORAZEPAM [Concomitant]
  5. SOLUTIONS FOR PARENTERAL NUTRITION [Concomitant]

REACTIONS (1)
  - Mental status changes [None]
